FAERS Safety Report 12499890 (Version 1)
Quarter: 2016Q2

REPORT INFORMATION
  Report Type: Spontaneous
  Country: US (occurrence: None)
  Receive Date: 20160624
  Receipt Date: 20160624
  Transmission Date: 20160815
  Serious: Yes (Other)
  Sender: FDA-Public Use
  Company Number: None

PATIENT
  Age: 51 Year
  Sex: Female
  Weight: 99.4 kg

DRUGS (1)
  1. DURAGESIC [Suspect]
     Active Substance: FENTANYL
     Indication: RHEUMATOID ARTHRITIS
     Dosage: EVERY 72*

REACTIONS (2)
  - Product adhesion issue [None]
  - Incorrect dose administered by device [None]

NARRATIVE: CASE EVENT DATE: 2014
